FAERS Safety Report 14539635 (Version 1)
Quarter: 2018Q1

REPORT INFORMATION
  Report Type: Spontaneous
  Country: US (occurrence: US)
  Receive Date: 20180215
  Receipt Date: 20180215
  Transmission Date: 20180509
  Serious: Yes (Hospitalization)
  Sender: FDA-Public Use
  Company Number: None

PATIENT
  Age: 29 Year
  Sex: Female
  Weight: 81.6 kg

DRUGS (12)
  1. LORATADINE. [Concomitant]
     Active Substance: LORATADINE
  2. FOLIC ACID. [Concomitant]
     Active Substance: FOLIC ACID
  3. IBUPROFEN. [Concomitant]
     Active Substance: IBUPROFEN
  4. GABAPENTIN. [Concomitant]
     Active Substance: GABAPENTIN
  5. RANITIDINE. [Concomitant]
     Active Substance: RANITIDINE
  6. OXYCODONE [Concomitant]
     Active Substance: OXYCODONE
  7. PROMETHAZINE [Concomitant]
     Active Substance: PROMETHAZINE\PROMETHAZINE HYDROCHLORIDE
  8. ACETAZOLAMIDE. [Suspect]
     Active Substance: ACETAZOLAMIDE
     Indication: IDIOPATHIC INTRACRANIAL HYPERTENSION
     Route: 048
     Dates: start: 20180111, end: 20180214
  9. KETOROLAC [Concomitant]
     Active Substance: KETOROLAC\KETOROLAC TROMETHAMINE
  10. VITAMIN D [Concomitant]
     Active Substance: CHOLECALCIFEROL
  11. LISINOPRIL. [Concomitant]
     Active Substance: LISINOPRIL
  12. POTASSIUM CHLORIDE. [Concomitant]
     Active Substance: POTASSIUM CHLORIDE

REACTIONS (2)
  - Chest pain [None]
  - Sickle cell anaemia with crisis [None]

NARRATIVE: CASE EVENT DATE: 20180114
